FAERS Safety Report 5389716-0 (Version None)
Quarter: 2007Q3

REPORT INFORMATION
  Report Type: 
  Country: None (occurrence: None)
  Receive Date: 20070717
  Receipt Date: 20070712
  Transmission Date: 20080115
  Serious: Yes (Other)
  Sender: FDA-Public Use
  Company Number: US-BOEHRINGER INGELHEIM PHARMACEUTICALS, INC.-2007-BP-17250BP

PATIENT
  Sex: Male

DRUGS (3)
  1. SPIRIVA [Suspect]
     Indication: CHRONIC OBSTRUCTIVE PULMONARY DISEASE
     Route: 055
     Dates: start: 20050101
  2. FORADIL [Suspect]
     Indication: BACK PAIN
     Dates: start: 20070401, end: 20070701
  3. LASIX [Concomitant]

REACTIONS (5)
  - BACK PAIN [None]
  - DRY MOUTH [None]
  - OROPHARYNGEAL PLAQUE [None]
  - PROSTATE CANCER [None]
  - TONGUE COATED [None]
